FAERS Safety Report 16621453 (Version 2)
Quarter: 2019Q3

REPORT INFORMATION
  Report Type: Spontaneous
  Country: FR (occurrence: FR)
  Receive Date: 20190723
  Receipt Date: 20190812
  Transmission Date: 20191004
  Serious: Yes (Death, Other)
  Sender: FDA-Public Use
  Company Number: FR-MYLANLABS-2019M1069140

PATIENT
  Age: 92 Year
  Sex: Male
  Weight: 88.7 kg

DRUGS (10)
  1. RAMIPRIL MYLAN 1,25 MG, COMPRIM? [Suspect]
     Active Substance: RAMIPRIL
     Indication: HYPERTENSION
     Dosage: 1 DOSAGE FORM, QD
     Route: 048
     Dates: end: 20190201
  2. VERAPAMIL [Suspect]
     Active Substance: VERAPAMIL HYDROCHLORIDE
     Indication: HYPERTENSION
     Dosage: 1 DOSAGE FORM, QD
     Route: 048
     Dates: end: 20190201
  3. ADENURIC [Suspect]
     Active Substance: FEBUXOSTAT
     Indication: GOUT
     Dosage: 1 DOSAGE FORM, QD
     Route: 048
     Dates: end: 20190201
  4. ATROVENT [Suspect]
     Active Substance: IPRATROPIUM BROMIDE
     Indication: CHRONIC OBSTRUCTIVE PULMONARY DISEASE
     Dosage: 3 DOSAGE FORM, QD
     Route: 055
     Dates: end: 20190201
  5. CEFTRIAXONE MYLAN 1 G, POUDRE POUR SOLUTION INJECTABLE [Suspect]
     Active Substance: CEFTRIAXONE
     Indication: LUNG INFECTION
     Dosage: 1 DOSAGE FORM, QD
     Route: 041
     Dates: start: 20190126, end: 20190201
  6. ROVAMYCINE                         /00074401/ [Suspect]
     Active Substance: SPIRAMYCIN
     Indication: LUNG INFECTION
     Dosage: 4 DOSAGE FORM, QD
     Route: 048
     Dates: start: 20190130, end: 20190201
  7. VENOFER [Suspect]
     Active Substance: IRON SUCROSE
     Dosage: 80 MILLIGRAM, QD
     Route: 042
     Dates: start: 20190131, end: 20190131
  8. BRICANYL [Suspect]
     Active Substance: TERBUTALINE SULFATE
     Indication: CHRONIC OBSTRUCTIVE PULMONARY DISEASE
     Dosage: 3 DOSAGE FORM, QD, 3 PUFFS A DAY
     Route: 055
     Dates: end: 20190201
  9. VENOFER [Suspect]
     Active Substance: IRON SUCROSE
     Indication: ANAEMIA
     Dosage: (100 MG/5 ML)
     Route: 041
     Dates: start: 20190131, end: 20190131
  10. PREVISCAN                          /00789001/ [Suspect]
     Active Substance: FLUINDIONE
     Indication: ATRIAL FIBRILLATION
     Dosage: 1 DOSAGE FORM, QD
     Route: 048
     Dates: end: 20190131

REACTIONS (3)
  - Cerebral haematoma [Fatal]
  - Prothrombin time ratio decreased [Recovering/Resolving]
  - International normalised ratio abnormal [Recovered/Resolved]

NARRATIVE: CASE EVENT DATE: 20190201
